FAERS Safety Report 16207222 (Version 1)
Quarter: 2019Q2

REPORT INFORMATION
  Report Type: Report from Study
  Country: None (occurrence: US)
  Receive Date: 20190417
  Receipt Date: 20190417
  Transmission Date: 20190711
  Serious: Yes (Hospitalization)
  Sender: FDA-Public Use
  Company Number: US-ABBVIE-18K-163-2540711-00

PATIENT
  Age: 59 Year
  Sex: Male

DRUGS (2)
  1. HUMIRA [Suspect]
     Active Substance: ADALIMUMAB
     Route: 058
  2. HUMIRA [Suspect]
     Active Substance: ADALIMUMAB
     Indication: RHEUMATOID ARTHRITIS
     Route: 058
     Dates: start: 20181024, end: 2018

REACTIONS (8)
  - Joint swelling [Recovering/Resolving]
  - Drug ineffective [Unknown]
  - Gait disturbance [Recovering/Resolving]
  - Joint stiffness [Recovering/Resolving]
  - Sinus disorder [Unknown]
  - Arthralgia [Recovering/Resolving]
  - Pain [Not Recovered/Not Resolved]
  - Gastric disorder [Unknown]

NARRATIVE: CASE EVENT DATE: 2018
